FAERS Safety Report 6740081-3 (Version None)
Quarter: 2010Q2

REPORT INFORMATION
  Report Type: 
  Country: None (occurrence: None)
  Receive Date: 20100525
  Receipt Date: 20090807
  Transmission Date: 20101027
  Serious: No
  Sender: FDA-Public Use
  Company Number: A0801095A

PATIENT
  Age: 15 Year
  Sex: Male

DRUGS (2)
  1. BACTROBAN [Suspect]
     Indication: SKIN INFECTION
     Dosage: 1APP PER DAY
     Route: 061
     Dates: start: 20090722, end: 20090723
  2. NO CONCURRENT MEDICATION [Concomitant]

REACTIONS (3)
  - ERYTHEMA [None]
  - ILL-DEFINED DISORDER [None]
  - RASH PAPULAR [None]
